FAERS Safety Report 4974348-6 (Version None)
Quarter: 2006Q2

REPORT INFORMATION
  Report Type: 
  Country: None (occurrence: None)
  Receive Date: 20060417
  Receipt Date: 20050928
  Transmission Date: 20061013
  Serious: Yes (Hospitalization, Other)
  Sender: FDA-Public Use
  Company Number: US-MERCK-0509USA04893

PATIENT
  Age: 41 Year
  Sex: Male

DRUGS (2)
  1. VIOXX [Suspect]
     Indication: RHEUMATOID ARTHRITIS
     Route: 048
     Dates: start: 20020101
  2. VIOXX [Suspect]
     Indication: ARTHRALGIA
     Route: 048
     Dates: start: 20020101

REACTIONS (9)
  - ANGINA UNSTABLE [None]
  - CHEST PAIN [None]
  - CORONARY ARTERY DISEASE [None]
  - CORONARY ARTERY STENOSIS [None]
  - GASTRITIS [None]
  - MYOCARDIAL INFARCTION [None]
  - OVERDOSE [None]
  - PEPTIC ULCER [None]
  - TOBACCO ABUSE [None]
